FAERS Safety Report 21159410 (Version 3)
Quarter: 2022Q4

REPORT INFORMATION
  Report Type: Spontaneous
  Country: US (occurrence: US)
  Receive Date: 20220802
  Receipt Date: 20221020
  Transmission Date: 20230113
  Serious: Yes (Hospitalization, Other)
  Sender: FDA-Public Use
  Company Number: US-CIPLA LTD.-2022US04708

PATIENT
  Age: 63 Year
  Sex: Male

DRUGS (20)
  1. BUPROPION [Interacting]
     Active Substance: BUPROPION
     Indication: Anxiety disorder
     Dosage: 150 MILLIGRAM, QD (EXTENDED RELEASE)
     Route: 048
     Dates: end: 201811
  2. BUPROPION [Interacting]
     Active Substance: BUPROPION
     Indication: Major depression
     Dosage: 150 MILLIGRAM, QD (EXTENDED RELEASE) (RE-STARTED)
     Route: 048
     Dates: start: 201811
  3. BUSPIRONE [Interacting]
     Active Substance: BUSPIRONE HYDROCHLORIDE
     Indication: Anxiety disorder
     Dosage: 30 MILLIGRAM, BID
     Route: 048
     Dates: end: 201811
  4. BUSPIRONE [Interacting]
     Active Substance: BUSPIRONE HYDROCHLORIDE
     Indication: Major depression
  5. DESVENLAFAXINE [Interacting]
     Active Substance: DESVENLAFAXINE
     Indication: Anxiety disorder
     Dosage: 100 MILLIGRAM, QD, EXTENDED-RELEASE
     Route: 048
     Dates: end: 201811
  6. DESVENLAFAXINE [Interacting]
     Active Substance: DESVENLAFAXINE
     Indication: Major depression
  7. TRAZODONE [Interacting]
     Active Substance: TRAZODONE HYDROCHLORIDE
     Indication: Anxiety disorder
     Dosage: 50 MG QHS (TAKES 50 -150 MG QHS)
     Route: 048
     Dates: end: 201811
  8. TRAZODONE [Interacting]
     Active Substance: TRAZODONE HYDROCHLORIDE
     Indication: Major depression
  9. ZIPRASIDONE [Interacting]
     Active Substance: ZIPRASIDONE
     Indication: Anxiety disorder
     Dosage: 40 MILLIGRAM, BID
     Route: 048
     Dates: end: 201811
  10. ZIPRASIDONE [Interacting]
     Active Substance: ZIPRASIDONE
     Indication: Major depression
  11. HERBALS\MITRAGYNINE [Interacting]
     Active Substance: HERBALS\MITRAGYNINE
     Indication: Anxiety disorder
     Dosage: UNK, TID (UNKNOWN QUANTITY SPRINKLED IN A DRINK 3 TIMES DAILY)
     Route: 048
     Dates: start: 2018, end: 201811
  12. HERBALS\MITRAGYNINE [Interacting]
     Active Substance: HERBALS\MITRAGYNINE
     Indication: Major depression
  13. DICLOFENAC [Concomitant]
     Active Substance: DICLOFENAC
     Indication: Product used for unknown indication
     Dosage: 75 MILLIGRAM, BID, DELAYED RELEASE
     Route: 048
  14. TIZANIDINE [Concomitant]
     Active Substance: TIZANIDINE
     Indication: Product used for unknown indication
     Dosage: 6 MG, Q8H, PRN
     Route: 048
  15. GABAPENTIN [Concomitant]
     Active Substance: GABAPENTIN
     Indication: Product used for unknown indication
     Dosage: 800 MG QHS
     Route: 048
  16. GLIMEPIRIDE [Concomitant]
     Active Substance: GLIMEPIRIDE
     Indication: Product used for unknown indication
     Dosage: 4 MG DAILY
     Route: 048
  17. METFORMIN [Concomitant]
     Active Substance: METFORMIN HYDROCHLORIDE
     Indication: Product used for unknown indication
     Dosage: 500 MILLIGRAM, QD, XR
     Route: 065
  18. OMEPRAZOLE [Concomitant]
     Active Substance: OMEPRAZOLE
     Indication: Product used for unknown indication
     Dosage: 40 MG DAILY
     Route: 048
  19. HYDROCHLOROTHIAZIDE [Concomitant]
     Active Substance: HYDROCHLOROTHIAZIDE
     Indication: Product used for unknown indication
     Dosage: 25 MG DAILY
     Route: 048
  20. AMLODIPINE [Concomitant]
     Active Substance: AMLODIPINE BESYLATE
     Indication: Product used for unknown indication
     Dosage: 5 MG DAILY
     Route: 048

REACTIONS (2)
  - Serotonin syndrome [Recovered/Resolved]
  - Drug interaction [Unknown]

NARRATIVE: CASE EVENT DATE: 20180101
